FAERS Safety Report 11029595 (Version 1)
Quarter: 2015Q2

REPORT INFORMATION
  Report Type: Spontaneous
  Country: US (occurrence: None)
  Receive Date: 20150413
  Receipt Date: 20150413
  Transmission Date: 20150821
  Serious: Yes (Hospitalization, Disabling, Other)
  Sender: FDA-Public Use
  Company Number: None

PATIENT
  Age: 40 Year
  Sex: Female
  Weight: 46.27 kg

DRUGS (23)
  1. SYNTHROID [Suspect]
     Active Substance: LEVOTHYROXINE SODIUM
     Indication: PROLACTINOMA
     Route: 048
  2. VYVANSE [Suspect]
     Active Substance: LISDEXAMFETAMINE DIMESYLATE
     Indication: ATTENTION DEFICIT/HYPERACTIVITY DISORDER
     Route: 048
  3. RESTASIS [Concomitant]
     Active Substance: CYCLOSPORINE
  4. CALCIUM [Concomitant]
     Active Substance: CALCIUM
  5. CLONAZEPAM. [Concomitant]
     Active Substance: CLONAZEPAM
  6. ADVIL [Concomitant]
     Active Substance: IBUPROFEN
  7. FISH OIL [Concomitant]
     Active Substance: FISH OIL
  8. DUCALAX [Concomitant]
  9. SENNA [Concomitant]
     Active Substance: SENNA LEAF\SENNOSIDES\SENNOSIDES A AND B
  10. SALONPAS PAIN RELIEF [Concomitant]
     Active Substance: MENTHOL\METHYL SALICYLATE
  11. LAMITROGINE [Concomitant]
     Active Substance: LAMOTRIGINE
  12. MELATONIN [Concomitant]
     Active Substance: MELATONIN
  13. VITAMIN B COMPLEX [Concomitant]
     Active Substance: CYANOCOBALAMIN\DEXPANTHENOL\NIACINAMIDE\PYRIDOXINE HYDROCHLORIDE\RIBOFLAVIN 5^-PHOSPHATE SODIUM\THIAMINE HYDROCHLORIDE\VITAMIN B COMPLEX
  14. TEMAZEPAM. [Concomitant]
     Active Substance: TEMAZEPAM
  15. SYNTHROID [Suspect]
     Active Substance: LEVOTHYROXINE SODIUM
     Indication: HYPOTHYROIDISM
     Route: 048
  16. CABERGOLINE. [Concomitant]
     Active Substance: CABERGOLINE
  17. LO LOESTRIN FE [Concomitant]
     Active Substance: ETHINYL ESTRADIOL\NORETHINDRONE ACETATE
  18. ONCE A DAY MULTIVITAMIN [Concomitant]
  19. STOOL SOFTENER [Concomitant]
     Active Substance: DOCUSATE CALCIUM
  20. SYNTHROID [Concomitant]
     Active Substance: LEVOTHYROXINE SODIUM
  21. VITAMIN D [Concomitant]
     Active Substance: CHOLECALCIFEROL
  22. SPIROLACTOLONE [Concomitant]
  23. PROMETHEZINE [Concomitant]

REACTIONS (2)
  - Unevaluable event [None]
  - Drug ineffective [None]
